FAERS Safety Report 19080220 (Version 2)
Quarter: 2021Q2

REPORT INFORMATION
  Report Type: Report from Study
  Country: SE (occurrence: SE)
  Receive Date: 20210401
  Receipt Date: 20210403
  Transmission Date: 20210717
  Serious: Yes (Other)
  Sender: FDA-Public Use
  Company Number: SE-AUROBINDO-AUR-APL-2021-013260

PATIENT
  Age: 36 Year
  Sex: Male
  Weight: 79 kg

DRUGS (5)
  1. VALACICLOVIR HYDROCHLORIDE [Concomitant]
     Active Substance: VALACYCLOVIR HYDROCHLORIDE
     Indication: PRODUCT USED FOR UNKNOWN INDICATION
     Dosage: UNK
     Route: 065
  2. EFAVIRENZ FILM?COATED TABLET [Suspect]
     Active Substance: EFAVIRENZ
     Indication: HIV INFECTION
     Dosage: 600 MILLIGRAM, ONCE A DAY
     Route: 065
  3. EMTRICITABINE;TENOFOVIR DISOPROXIL FUMARATE [Suspect]
     Active Substance: EMTRICITABINE\TENOFOVIR DISOPROXIL FUMARATE
     Indication: HIV INFECTION
     Dosage: UNK UNK, ONCE A DAY (200/245 MG 1X1)
     Route: 065
  4. CETIRIZINE DIHYDROCHLORIDE [Concomitant]
     Active Substance: CETIRIZINE HYDROCHLORIDE
     Indication: PRODUCT USED FOR UNKNOWN INDICATION
     Dosage: UNK
     Route: 065
  5. XYLOPROCT [Concomitant]
     Indication: PRODUCT USED FOR UNKNOWN INDICATION
     Dosage: UNK
     Route: 065

REACTIONS (3)
  - Erectile dysfunction [Unknown]
  - Coma [Unknown]
  - Abnormal dreams [Unknown]
